FAERS Safety Report 22239270 (Version 2)
Quarter: 2023Q2

REPORT INFORMATION
  Report Type: Spontaneous
  Country: BE (occurrence: BE)
  Receive Date: 20230421
  Receipt Date: 20230505
  Transmission Date: 20230722
  Serious: Yes (Other)
  Sender: FDA-Public Use
  Company Number: BE-GSKCCFEMEA-Case-01713435_AE-69848

PATIENT

DRUGS (1)
  1. LAMICTAL [Suspect]
     Active Substance: LAMOTRIGINE
     Indication: Product used for unknown indication
     Dosage: 200 MG, BID

REACTIONS (3)
  - Hemiplegia [Unknown]
  - Wrong technique in product usage process [Unknown]
  - Drug ineffective [Unknown]
